FAERS Safety Report 15370446 (Version 2)
Quarter: 2022Q1

REPORT INFORMATION
  Report Type: Spontaneous
  Country: CH (occurrence: CH)
  Receive Date: 20180911
  Receipt Date: 20220331
  Transmission Date: 20220423
  Serious: Yes (Hospitalization)
  Sender: FDA-Public Use
  Company Number: None

PATIENT
  Age: 21 Year
  Sex: Male
  Weight: 69 kg

DRUGS (13)
  1. ISOTRETINOIN [Suspect]
     Active Substance: ISOTRETINOIN
     Dosage: 20 MILLIGRAM DAILY;
     Dates: start: 20170703, end: 20170912
  2. ISOTRETINOIN [Suspect]
     Active Substance: ISOTRETINOIN
     Dosage: 1 DOSAGE FORMS DAILY;
     Dates: start: 201807
  3. PANTOZOL [Suspect]
     Active Substance: PANTOPRAZOLE SODIUM
     Dosage: 40 MILLIGRAM DAILY;
     Route: 048
     Dates: end: 20170912
  4. PANTOZOL [Suspect]
     Active Substance: PANTOPRAZOLE SODIUM
     Dates: start: 20170919
  5. METAMIZOLE [Suspect]
     Active Substance: METAMIZOLE
     Dosage: 2000 MILLIGRAM DAILY;
     Dates: start: 20170808, end: 20170912
  6. DAFALGAN [Suspect]
     Active Substance: ACETAMINOPHEN
     Dosage: 2000 MILLIGRAM DAILY;
     Dates: start: 20170902, end: 20170912
  7. MEROPENEM [Suspect]
     Active Substance: MEROPENEM
     Dosage: 1 GRAM DAILY;
     Route: 041
     Dates: start: 20170911, end: 20170912
  8. PIPERACILLIN SODIUM\TAZOBACTAM SODIUM [Suspect]
     Active Substance: PIPERACILLIN SODIUM\TAZOBACTAM SODIUM
     Dosage: 13.5 GRAM DAILY;
     Dates: start: 20170825, end: 20170911
  9. FRAGMIN [Concomitant]
     Active Substance: DALTEPARIN SODIUM
     Dosage: 5000 IU (INTERNATIONAL UNIT) DAILY;
  10. BUDESONIDE [Concomitant]
     Active Substance: BUDESONIDE
     Dosage: 3 MILLIGRAM DAILY;
     Dates: start: 20170905
  11. CHOLECALCIFEROL [Concomitant]
     Active Substance: CHOLECALCIFEROL
     Dosage: FORM OF ADMIN: LIQUIDS, DROPS
  12. ZINK BIOMED [Concomitant]
  13. NALOXONE HYDROCHLORIDE\OXYCODONE HYDROCHLORIDE [Concomitant]
     Active Substance: NALOXONE HYDROCHLORIDE\OXYCODONE HYDROCHLORIDE
     Dosage: 10 MILLIGRAM DAILY;

REACTIONS (3)
  - Neutropenia [Recovered/Resolved]
  - Thrombocytopenia [Recovered/Resolved]
  - Rash maculo-papular [Recovered/Resolved]

NARRATIVE: CASE EVENT DATE: 20170911
